FAERS Safety Report 7249022-6 (Version None)
Quarter: 2011Q1

REPORT INFORMATION
  Report Type: 
  Country: None (occurrence: None)
  Receive Date: 20110128
  Receipt Date: 20101122
  Transmission Date: 20110831
  Serious: Yes (Hospitalization, Other)
  Sender: FDA-Public Use
  Company Number: US-BAYER-2010-003208

PATIENT
  Sex: Female
  Weight: 47.619 kg

DRUGS (7)
  1. YASMIN [Suspect]
     Indication: CONTRACEPTION
     Dosage: UNK
     Dates: start: 20020101, end: 20050101
  2. PHENERGAN [Concomitant]
  3. YAZ [Suspect]
     Indication: CONTRACEPTION
     Dosage: UNK
     Dates: start: 20070101, end: 20070101
  4. PERCOCET [Concomitant]
  5. YASMIN [Suspect]
     Dosage: UNK
     Dates: start: 20080101
  6. TYLENOL REGULAR [Concomitant]
     Indication: ANALGESIC THERAPY
  7. ADVIL [Concomitant]
     Dosage: UNK
     Dates: start: 19920101

REACTIONS (6)
  - VOMITING [None]
  - GALLBLADDER DISORDER [None]
  - ABDOMINAL PAIN [None]
  - HEADACHE [None]
  - CHOLECYSTITIS CHRONIC [None]
  - NAUSEA [None]
